FAERS Safety Report 8382766-1 (Version None)
Quarter: 2012Q1

REPORT INFORMATION
  Report Type: 
  Country: None (occurrence: None)
  Receive Date: 20120323
  Receipt Date: 20110512
  Transmission Date: 20120608
  Serious: Yes (Other)
  Sender: FDA-Public Use
  Company Number: 163-21880-11051642

PATIENT
  Age: 62 Year
  Sex: Male

DRUGS (8)
  1. DEXAMETHASONE [Concomitant]
  2. FLOMAX [Concomitant]
  3. IPRATOPIUM (IPRATROPIUM) [Concomitant]
  4. NEURONTIN [Concomitant]
  5. VICODIN [Concomitant]
  6. ADVAIR HFA [Concomitant]
  7. AMITRIPTYLINE HCL [Concomitant]
  8. REVLIMID [Suspect]
     Indication: HYPERGAMMAGLOBULINAEMIA BENIGN MONOCLONAL
     Dosage: 10 MG, 1 IN 1 D, PO
     Route: 048
     Dates: start: 20090808, end: 20100101

REACTIONS (1)
  - DEEP VEIN THROMBOSIS [None]
